FAERS Safety Report 4399788-8 (Version None)
Quarter: 2004Q3

REPORT INFORMATION
  Report Type: 
  Country: None (occurrence: None)
  Receive Date: 20040714
  Receipt Date: 20040628
  Transmission Date: 20050211
  Serious: Yes (Hospitalization)
  Sender: FDA-Public Use
  Company Number: GB-JNJFOC-20040602165

PATIENT
  Age: 48 Year
  Sex: Male

DRUGS (8)
  1. REMICADE [Suspect]
     Indication: RHEUMATOID ARTHRITIS
     Dosage: 210 MG, INTRAVENOUS
     Route: 042
     Dates: start: 20021111, end: 20040413
  2. PREDNISOLONE [Concomitant]
  3. METHOTREXATE [Concomitant]
  4. FOLIC ACID [Concomitant]
  5. CO-PROXAMOL (APOREX) [Concomitant]
  6. CALCICHEW (CALCIUM CARBONATE) [Concomitant]
  7. RANITIDINE [Concomitant]
  8. VENLAFAXINE HCL [Concomitant]

REACTIONS (8)
  - CHILLS [None]
  - HYPERTENSION [None]
  - INFUSION RELATED REACTION [None]
  - PYREXIA [None]
  - TACHYCARDIA [None]
  - TREMOR [None]
  - TYPE IV HYPERSENSITIVITY REACTION [None]
  - VOMITING [None]
